FAERS Safety Report 18462257 (Version 1)
Quarter: 2020Q4

REPORT INFORMATION
  Report Type: Spontaneous
  Country: CA (occurrence: CA)
  Receive Date: 20201104
  Receipt Date: 20201104
  Transmission Date: 20210114
  Serious: Yes (Other)
  Sender: FDA-Public Use
  Company Number: CA-JNJFOC-20201047668

PATIENT
  Age: 77 Year
  Sex: Male

DRUGS (7)
  1. REMICADE [Suspect]
     Active Substance: INFLIXIMAB
     Indication: CROHN^S DISEASE
     Route: 042
  2. METFORMIN [Concomitant]
     Active Substance: METFORMIN HYDROCHLORIDE
     Route: 065
  3. TAMSULOSIN [Concomitant]
     Active Substance: TAMSULOSIN
     Route: 048
  4. OLMETEC [Concomitant]
     Active Substance: OLMESARTAN MEDOXOMIL
     Route: 048
  5. BUDESONIDE. [Concomitant]
     Active Substance: BUDESONIDE
     Route: 048
  6. ROSUVASTATIN. [Concomitant]
     Active Substance: ROSUVASTATIN
     Route: 048
  7. METOPROLOL. [Concomitant]
     Active Substance: METOPROLOL
     Route: 048

REACTIONS (8)
  - Oxygen saturation abnormal [Unknown]
  - Blood pressure fluctuation [Unknown]
  - Intentional product use issue [Unknown]
  - White coat hypertension [Unknown]
  - Anxiety [Unknown]
  - Off label use [Unknown]
  - Condition aggravated [Unknown]
  - Blood pressure increased [Unknown]
